FAERS Safety Report 5801908-2 (Version None)
Quarter: 2008Q3

REPORT INFORMATION
  Report Type: 
  Country: None (occurrence: None)
  Receive Date: 20080707
  Receipt Date: 20080623
  Transmission Date: 20090109
  Serious: Yes (Other)
  Sender: FDA-Public Use
  Company Number: US-ELI_LILLY_AND_COMPANY-US200806005044

PATIENT
  Age: 14 Year
  Sex: Female

DRUGS (4)
  1. CYMBALTA [Suspect]
     Indication: AFFECTIVE DISORDER
     Dosage: 30 MG, UNK
     Dates: start: 20080528, end: 20080611
  2. CYMBALTA [Suspect]
     Dosage: 60 MG, DAILY (1/D)
     Dates: start: 20080612, end: 20080616
  3. CYMBALTA [Suspect]
     Dosage: 30 MG, UNK
     Dates: start: 20080619
  4. RISPERDAL [Concomitant]
     Dosage: 0.25 MG, UNK
     Dates: start: 20080528

REACTIONS (6)
  - DYSPNOEA [None]
  - LETHARGY [None]
  - LOSS OF CONSCIOUSNESS [None]
  - SOMNOLENCE [None]
  - STUPOR [None]
  - UNRESPONSIVE TO STIMULI [None]
